FAERS Safety Report 9562774 (Version 1)
Quarter: 2013Q3

REPORT INFORMATION
  Report Type: Spontaneous
  Country: SE (occurrence: SE)
  Receive Date: 20130927
  Receipt Date: 20130927
  Transmission Date: 20140515
  Serious: Yes (Life-Threatening)
  Sender: FDA-Public Use
  Company Number: SE-ASTRAZENECA-2013SE71737

PATIENT
  Age: 59 Year
  Sex: Female

DRUGS (4)
  1. OMEPRAZOL [Suspect]
     Route: 048
  2. NEXIUM (CROSS PHARMA AB) [Suspect]
     Route: 048
  3. SALURES (PFIZER AB) [Concomitant]
  4. DRUGS NOT SHOWN [Concomitant]

REACTIONS (2)
  - Hypocalcaemia [Recovered/Resolved]
  - Hypomagnesaemia [Recovered/Resolved]
